FAERS Safety Report 8448439-1 (Version None)
Quarter: 2012Q2

REPORT INFORMATION
  Report Type: 
  Country: None (occurrence: None)
  Receive Date: 20120619
  Receipt Date: 20120615
  Transmission Date: 20120825
  Serious: Yes (Other)
  Sender: FDA-Public Use
  Company Number: PHEH2011US013013

PATIENT
  Sex: Female

DRUGS (1)
  1. GILENYA [Suspect]
     Indication: MULTIPLE SCLEROSIS
     Dosage: 0.5 MG, DAILY
     Route: 048
     Dates: start: 20110511

REACTIONS (8)
  - HEADACHE [None]
  - MULTIPLE ALLERGIES [None]
  - CYSTITIS [None]
  - BLOOD CHOLESTEROL INCREASED [None]
  - MIGRAINE [None]
  - PARAESTHESIA [None]
  - VISION BLURRED [None]
  - INTERVERTEBRAL DISC PROTRUSION [None]
